FAERS Safety Report 10777900 (Version 1)
Quarter: 2015Q1

REPORT INFORMATION
  Report Type: Spontaneous
  Country: US (occurrence: US)
  Receive Date: 20150209
  Receipt Date: 20150209
  Transmission Date: 20150721
  Serious: Yes (Hospitalization)
  Sender: FDA-Public Use
  Company Number: US-BAUSCH-BL-2015-002401

PATIENT
  Age: 7 Year
  Sex: Female

DRUGS (2)
  1. XENAZINE [Suspect]
     Active Substance: TETRABENAZINE
     Indication: PRODUCT USED FOR UNKNOWN INDICATION
     Dosage: HALF PILL
     Route: 048
     Dates: start: 201501, end: 201501
  2. XENAZINE [Suspect]
     Active Substance: TETRABENAZINE
     Dosage: FULL PILL
     Route: 048
     Dates: start: 20150126

REACTIONS (4)
  - Pyrexia [Unknown]
  - Movement disorder [Unknown]
  - Vomiting [Unknown]
  - Musculoskeletal stiffness [Unknown]

NARRATIVE: CASE EVENT DATE: 201501
